FAERS Safety Report 13953812 (Version 1)
Quarter: 2017Q3

REPORT INFORMATION
  Report Type: Spontaneous
  Country: US (occurrence: US)
  Receive Date: 20170908
  Receipt Date: 20170908
  Transmission Date: 20171128
  Serious: Yes (Disabling, Other)
  Sender: FDA-Public Use
  Company Number: None

PATIENT
  Age: 31 Year
  Sex: Male
  Weight: 80.55 kg

DRUGS (6)
  1. MULTIVITAMIN [Concomitant]
     Active Substance: VITAMINS
  2. OMEGA 3 [Concomitant]
     Active Substance: OMEGA-3 FATTY ACIDS
  3. AMINO ACIDS [Concomitant]
     Active Substance: AMINO ACIDS
  4. ARIPIPRAZOLE 10MG AMNEAL [Suspect]
     Active Substance: ARIPIPRAZOLE
     Indication: DEPRESSED MOOD
     Dosage: ?          QUANTITY:1 TABLET(S);?
     Route: 048
     Dates: start: 20170901, end: 20170908
  5. MULTIVITAMIN FOR MEN [Concomitant]
  6. PROTEIN SHAKES [Concomitant]

REACTIONS (4)
  - Disturbance in attention [None]
  - Anxiety [None]
  - Paraesthesia [None]
  - Depressed mood [None]

NARRATIVE: CASE EVENT DATE: 20170904
